FAERS Safety Report 8611449-5 (Version None)
Quarter: 2012Q3

REPORT INFORMATION
  Report Type: 
  Country: None (occurrence: None)
  Receive Date: 20120805
  Receipt Date: 20120702
  Transmission Date: 20120928
  Serious: Yes (Life-Threatening, Hospitalization)
  Sender: FDA-Public Use
  Company Number: US-145215

PATIENT
  Sex: Female
  Weight: 110 kg

DRUGS (9)
  1. WELLBUTRIN [Concomitant]
  2. CELEXA [Concomitant]
  3. WINRHO SDF [Suspect]
     Indication: IDIOPATHIC THROMBOCYTOPENIC PURPURA
     Dosage: (45.45 UG/KG TOTAL INTRAVENOUS (NOT OTHERWISE SPECIFIED), (INTRAVENOUS (NOT OTHERWISE SPECIFIED)
     Route: 042
     Dates: start: 20110628, end: 20110628
  4. WINRHO SDF [Suspect]
     Indication: IDIOPATHIC THROMBOCYTOPENIC PURPURA
     Dosage: (45.45 UG/KG TOTAL INTRAVENOUS (NOT OTHERWISE SPECIFIED), (INTRAVENOUS (NOT OTHERWISE SPECIFIED)
     Route: 042
     Dates: start: 20110628, end: 20110628
  5. ZITHROMAX [Concomitant]
  6. WINRHO SDF [Suspect]
  7. THERAFLU [Concomitant]
  8. CELEBREX [Concomitant]
  9. NUVARING [Concomitant]

REACTIONS (31)
  - ENCEPHALOPATHY [None]
  - RENAL FAILURE [None]
  - BLOOD BICARBONATE DECREASED [None]
  - BLOOD LACTATE DEHYDROGENASE INCREASED [None]
  - ALANINE AMINOTRANSFERASE INCREASED [None]
  - BLOOD ALKALINE PHOSPHATASE INCREASED [None]
  - MENINGITIS [None]
  - HYPOTENSION [None]
  - CONVULSION [None]
  - HAEMODYNAMIC INSTABILITY [None]
  - BLOOD PRESSURE DECREASED [None]
  - BLOOD GLUCOSE INCREASED [None]
  - AGGRESSION [None]
  - ACUTE RESPIRATORY FAILURE [None]
  - ACTIVATED PARTIAL THROMBOPLASTIN TIME PROLONGED [None]
  - RESTLESSNESS [None]
  - PNEUMONIA [None]
  - ASPARTATE AMINOTRANSFERASE INCREASED [None]
  - PYREXIA [None]
  - STATUS EPILEPTICUS [None]
  - ELECTROCARDIOGRAM ST-T CHANGE [None]
  - CONCOMITANT DISEASE PROGRESSION [None]
  - BLOOD LACTIC ACID INCREASED [None]
  - ASTHENIA [None]
  - CONFUSIONAL STATE [None]
  - CHILLS [None]
  - MENTAL STATUS CHANGES [None]
  - LETHARGY [None]
  - DEPRESSED LEVEL OF CONSCIOUSNESS [None]
  - SINUS TACHYCARDIA [None]
  - RESPIRATORY DISORDER [None]
